FAERS Safety Report 6063578-0 (Version None)
Quarter: 2009Q1

REPORT INFORMATION
  Report Type: 
  Country: None (occurrence: None)
  Receive Date: 20090129
  Receipt Date: 20090122
  Transmission Date: 20090719
  Serious: Yes (Death)
  Sender: FDA-Public Use
  Company Number: 2008-185204-NL

PATIENT
  Age: 31 Year
  Sex: Female
  Weight: 52.2 kg

DRUGS (2)
  1. NUVARING [Suspect]
     Indication: CONTRACEPTION
     Dosage: VAGINAL
     Route: 067
     Dates: start: 20080122, end: 20080201
  2. NUVARING [Suspect]
     Indication: MENSTRUATION IRREGULAR
     Dosage: VAGINAL
     Route: 067
     Dates: start: 20080122, end: 20080201

REACTIONS (3)
  - CHOLELITHIASIS [None]
  - EMBOLISM [None]
  - RESPIRATORY FAILURE [None]
